FAERS Safety Report 5304632-8 (Version None)
Quarter: 2007Q2

REPORT INFORMATION
  Report Type: 
  Country: None (occurrence: None)
  Receive Date: 20070423
  Receipt Date: 20070412
  Transmission Date: 20071010
  Serious: Yes (Other)
  Sender: FDA-Public Use
  Company Number: GB-GLAXOSMITHKLINE-B0467254A

PATIENT
  Age: 50 Year
  Sex: Male

DRUGS (4)
  1. LITHIUM CARBONATE [Suspect]
     Route: 065
  2. AZATHIOPRINE [Suspect]
     Dosage: 50MG PER DAY
     Route: 065
  3. CARBAMAZEPINE [Suspect]
     Route: 065
  4. CYCLOSPORINE [Suspect]
     Dosage: 200MG TWICE PER DAY
     Route: 065

REACTIONS (7)
  - FOLLICULITIS [None]
  - HYPERTRICHOSIS [None]
  - RASH PAPULAR [None]
  - RASH PRURITIC [None]
  - RENAL FAILURE [None]
  - SEBACEOUS HYPERPLASIA [None]
  - SQUAMOUS CELL CARCINOMA [None]
